FAERS Safety Report 5101808-X (Version None)
Quarter: 2006Q3

REPORT INFORMATION
  Report Type: 
  Country: None (occurrence: None)
  Receive Date: 20060731
  Receipt Date: 20060601
  Transmission Date: 20061208
  Serious: No
  Sender: FDA-Public Use
  Company Number: 2006PV014879

PATIENT
  Age: 64 Year
  Sex: Female
  Weight: 102.9665 kg

DRUGS (4)
  1. BYETTA [Suspect]
     Indication: DIABETES MELLITUS NON-INSULIN-DEPENDENT
     Dosage: 10 MCG; BID; SC
     Route: 058
     Dates: start: 20060101, end: 20060501
  2. BYETTA [Suspect]
     Dosage: 5 MCG; BID; SC
     Route: 058
     Dates: start: 20060401, end: 20060101
  3. LANTUS [Concomitant]
  4. AMARYL [Concomitant]

REACTIONS (15)
  - BLOOD GLUCOSE INCREASED [None]
  - CONSTIPATION [None]
  - DECREASED APPETITE [None]
  - DIZZINESS [None]
  - DRY MOUTH [None]
  - DYSGEUSIA [None]
  - DYSPEPSIA [None]
  - FAECES HARD [None]
  - HEADACHE [None]
  - IRRITABILITY [None]
  - NAUSEA [None]
  - PAROSMIA [None]
  - SOMNOLENCE [None]
  - THIRST [None]
  - WEIGHT DECREASED [None]
